FAERS Safety Report 4508382-7 (Version None)
Quarter: 2004Q4

REPORT INFORMATION
  Report Type: 
  Country: None (occurrence: None)
  Receive Date: 20041123
  Receipt Date: 20040122
  Transmission Date: 20050328
  Serious: No
  Sender: FDA-Public Use
  Company Number: US-GLAXOSMITHKLINE-A0494716A

PATIENT
  Age: 58 Year
  Sex: Male

DRUGS (8)
  1. WELLBUTRIN [Suspect]
     Indication: DEPRESSION
     Dosage: 300 PER DAY
     Route: 048
     Dates: start: 20030708
  2. NEXIUM [Concomitant]
  3. AMARYL [Concomitant]
  4. PLAVIX [Concomitant]
  5. UNSPECIFIED DRUG [Concomitant]
  6. ALLOPURINOL [Concomitant]
  7. GLUCOPHAGE XR [Concomitant]
  8. TOPRAL [Concomitant]

REACTIONS (3)
  - DIARRHOEA [None]
  - FLATULENCE [None]
  - PHARMACEUTICAL PRODUCT COMPLAINT [None]
